FAERS Safety Report 6019682-6 (Version None)
Quarter: 2008Q4

REPORT INFORMATION
  Report Type: 
  Country: None (occurrence: None)
  Receive Date: 20081224
  Receipt Date: 20081218
  Transmission Date: 20090506
  Serious: Yes (Disabling)
  Sender: FDA-Public Use
  Company Number: CA-ASTRAZENECA-2008UW28399

PATIENT
  Age: 50 Year
  Sex: Male

DRUGS (8)
  1. CRESTOR [Suspect]
     Route: 048
     Dates: start: 20070601
  2. CRESTOR [Suspect]
     Route: 048
     Dates: start: 20081001
  3. CRESTOR [Suspect]
     Route: 048
     Dates: start: 20081201
  4. METFORMIN HCL [Concomitant]
     Indication: DIABETES MELLITUS
     Dosage: 500 MG
     Route: 048
  5. CIALIS [Concomitant]
     Dates: start: 20081101
  6. ASPIRIN [Concomitant]
  7. COVERSYL [Concomitant]
     Indication: HYPERTENSION
     Dates: start: 20070601
  8. GLICLAZIDE [Concomitant]
     Indication: DIABETES MELLITUS
     Dosage: 3 TABS DAILY
     Dates: start: 20081217

REACTIONS (8)
  - BACK PAIN [None]
  - BLOOD CHOLESTEROL INCREASED [None]
  - BLOOD GLUCOSE INCREASED [None]
  - DIZZINESS [None]
  - FALL [None]
  - FATIGUE [None]
  - INSOMNIA [None]
  - THIRST [None]
